FAERS Safety Report 21703330 (Version 1)
Quarter: 2022Q4

REPORT INFORMATION
  Report Type: Spontaneous
  Country: US (occurrence: None)
  Receive Date: 20221209
  Receipt Date: 20221209
  Transmission Date: 20230113
  Serious: Yes (Hospitalization, Other)
  Sender: FDA-Public Use
  Company Number: US-VistaPharm, Inc.-VER202212-000982

PATIENT
  Age: 60 Year
  Sex: Male

DRUGS (5)
  1. PHENYTOIN [Suspect]
     Active Substance: PHENYTOIN
     Indication: Seizure
     Dosage: UNKNOWN
     Route: 065
  2. WARFARIN [Concomitant]
     Active Substance: WARFARIN
     Indication: Deep vein thrombosis
     Dosage: UNKNOWN
     Route: 065
  3. WARFARIN [Concomitant]
     Active Substance: WARFARIN
     Indication: Pulmonary embolism
  4. UNSPECIFIED INGREDIENT [Concomitant]
     Active Substance: UNSPECIFIED INGREDIENT
     Indication: Deep vein thrombosis
     Dosage: UNKNOWN
     Route: 065
  5. UNSPECIFIED INGREDIENT [Concomitant]
     Active Substance: UNSPECIFIED INGREDIENT
     Indication: Pulmonary embolism

REACTIONS (2)
  - Drug interaction [Unknown]
  - Deep vein thrombosis [Unknown]
